FAERS Safety Report 11444504 (Version 4)
Quarter: 2018Q2

REPORT INFORMATION
  Report Type: Spontaneous
  Country: CA (occurrence: CA)
  Receive Date: 20150902
  Receipt Date: 20180507
  Transmission Date: 20180711
  Serious: Yes (Other)
  Sender: FDA-Public Use
  Company Number: CA-ROCHE-1628710

PATIENT
  Age: 56 Year
  Sex: Female
  Weight: 69 kg

DRUGS (17)
  1. RITUXAN [Suspect]
     Active Substance: RITUXIMAB
     Indication: RHEUMATOID ARTHRITIS
     Dosage: 2014 UNKNOWN DOSE START/STOP DATE
     Route: 065
  2. XELJANZ [Suspect]
     Active Substance: TOFACITINIB CITRATE
     Indication: PRODUCT USED FOR UNKNOWN INDICATION
     Route: 065
  3. METHOTREXATE. [Suspect]
     Active Substance: METHOTREXATE
     Indication: RHEUMATOID ARTHRITIS
     Route: 058
     Dates: start: 201609
  4. PANTOLOC [Concomitant]
     Active Substance: PANTOPRAZOLE SODIUM
     Route: 048
     Dates: start: 201612
  5. PREDNISONE. [Suspect]
     Active Substance: PREDNISONE
     Route: 048
  6. CORTISONE [Concomitant]
     Active Substance: CORTISONE\HYDROCORTISONE
  7. FOLIC ACID. [Concomitant]
     Active Substance: FOLIC ACID
     Dosage: EXCEPT TUESDAYS
     Route: 065
     Dates: start: 201609
  8. PREDNISONE. [Suspect]
     Active Substance: PREDNISONE
     Indication: PRODUCT USED FOR UNKNOWN INDICATION
     Route: 048
     Dates: start: 201610
  9. ACETAMINOPHEN. [Concomitant]
     Active Substance: ACETAMINOPHEN
  10. ACTEMRA [Suspect]
     Active Substance: TOCILIZUMAB
     Indication: RHEUMATOID ARTHRITIS
     Route: 065
     Dates: start: 2012, end: 20170217
  11. HYDROXYCHLOROQUINE SULPHATE [Suspect]
     Active Substance: HYDROXYCHLOROQUINE
     Indication: RHEUMATOID ARTHRITIS
     Route: 065
  12. NAPROSYN [Concomitant]
     Active Substance: NAPROXEN
  13. TYLENOL [Concomitant]
     Active Substance: ACETAMINOPHEN
  14. TYLENOL WITH CODEINE [Concomitant]
     Active Substance: ACETAMINOPHEN\CODEINE PHOSPHATE
     Dosage: AT NIGHT
     Route: 048
  15. PLAQUENIL [Suspect]
     Active Substance: HYDROXYCHLOROQUINE SULFATE
     Indication: RHEUMATOID ARTHRITIS
     Route: 065
  16. SULFASALAZINE. [Suspect]
     Active Substance: SULFASALAZINE
     Indication: RHEUMATOID ARTHRITIS
     Route: 065
  17. COVERSYL [Concomitant]
     Active Substance: PERINDOPRIL
     Route: 048

REACTIONS (8)
  - Drug ineffective [Unknown]
  - Diverticulitis [Not Recovered/Not Resolved]
  - Arthropathy [Not Recovered/Not Resolved]
  - Limb injury [Unknown]
  - Fatigue [Unknown]
  - Skin atrophy [Not Recovered/Not Resolved]
  - Injection site reaction [Not Recovered/Not Resolved]
  - Laceration [Not Recovered/Not Resolved]
